FAERS Safety Report 4791210-2 (Version None)
Quarter: 2005Q4

REPORT INFORMATION
  Report Type: 
  Country: None (occurrence: None)
  Receive Date: 20051007
  Receipt Date: 20050930
  Transmission Date: 20060501
  Serious: Yes (Hospitalization)
  Sender: FDA-Public Use
  Company Number: US-BRISTOL-MYERS SQUIBB COMPANY-13128244

PATIENT
  Age: 53 Year
  Sex: Male
  Weight: 57 kg

DRUGS (3)
  1. CETUXIMAB [Suspect]
     Indication: NON-SMALL CELL LUNG CANCER
     Dosage: 427 MG INITIATED ON 09-SEP-2005.
     Route: 042
     Dates: start: 20050915, end: 20050915
  2. CARBOPLATIN [Suspect]
     Indication: NON-SMALL CELL LUNG CANCER
     Dosage: INITIATED ON 09-SEP-2005.
     Route: 042
     Dates: start: 20050915, end: 20050915
  3. PACLITAXEL [Suspect]
     Indication: NON-SMALL CELL LUNG CANCER

REACTIONS (5)
  - COUGH [None]
  - FATIGUE [None]
  - HAEMOGLOBIN DECREASED [None]
  - NAUSEA [None]
  - VOMITING [None]
